FAERS Safety Report 9735258 (Version 1)
Quarter: 2013Q4

REPORT INFORMATION
  Report Type: Spontaneous
  Country: IT (occurrence: IT)
  Receive Date: 20131206
  Receipt Date: 20131206
  Transmission Date: 20140711
  Serious: Yes (Hospitalization)
  Sender: FDA-Public Use
  Company Number: IT-JNJFOC-20131200898

PATIENT
  Age: 87 Year
  Sex: Female

DRUGS (1)
  1. SERENASE [Suspect]
     Indication: AGITATION
     Route: 048
     Dates: start: 20130401, end: 20130517

REACTIONS (1)
  - Psychomotor hyperactivity [Recovering/Resolving]
